FAERS Safety Report 12215255 (Version 3)
Quarter: 2016Q2

REPORT INFORMATION
  Report Type: Report from Study
  Country: CA (occurrence: CA)
  Receive Date: 20160328
  Receipt Date: 20160425
  Transmission Date: 20160815
  Serious: Yes (Other)
  Sender: FDA-Public Use
  Company Number: CA-JNJFOC-20160323292

PATIENT
  Age: 72 Year
  Sex: Female
  Weight: 86.01 kg

DRUGS (2)
  1. REMICADE [Suspect]
     Active Substance: INFLIXIMAB
     Indication: COLITIS ULCERATIVE
     Route: 042
     Dates: start: 20111006
  2. REMICADE [Suspect]
     Active Substance: INFLIXIMAB
     Indication: COLITIS ULCERATIVE
     Route: 042
     Dates: start: 20160319, end: 20160411

REACTIONS (2)
  - Haematochezia [Recovering/Resolving]
  - Colitis ulcerative [Unknown]

NARRATIVE: CASE EVENT DATE: 20160411
